FAERS Safety Report 24450754 (Version 1)
Quarter: 2024Q4

REPORT INFORMATION
  Report Type: Spontaneous
  Country: US (occurrence: US)
  Receive Date: 20241017
  Receipt Date: 20241017
  Transmission Date: 20250114
  Serious: Yes (Other)
  Sender: MERCK
  Company Number: US-009507513-2410USA005136

PATIENT
  Age: 70 Year
  Sex: Male

DRUGS (1)
  1. TICE BCG [Suspect]
     Active Substance: BACILLUS CALMETTE-GUERIN SUBSTRAIN TICE LIVE ANTIGEN
     Indication: Bladder transitional cell carcinoma
     Dosage: 81 MG IN 50 ML OF NORMAL SALINE, ADMINISTERED ONCE WEEKLY (QW)
     Route: 043

REACTIONS (1)
  - Bacterial pyelonephritis [Recovering/Resolving]
